FAERS Safety Report 25179250 (Version 3)
Quarter: 2025Q3

REPORT INFORMATION
  Report Type: Spontaneous
  Country: EU (occurrence: EU)
  Receive Date: 20250409
  Receipt Date: 20250714
  Transmission Date: 20251021
  Serious: Yes (Other)
  Sender: ORGANON
  Company Number: EU-ORGANON-O2504FRA000751

PATIENT
  Sex: Female

DRUGS (1)
  1. NEXPLANON [Suspect]
     Active Substance: ETONOGESTREL
     Route: 059
     Dates: start: 20250313, end: 2025

REACTIONS (3)
  - Vaginal haemorrhage [Not Recovered/Not Resolved]
  - Anaemia [Unknown]
  - Migraine [Unknown]

NARRATIVE: CASE EVENT DATE: 20250101
